FAERS Safety Report 18503967 (Version 5)
Quarter: 2025Q4

REPORT INFORMATION
  Report Type: Report from Study
  Country: US (occurrence: US)
  Receive Date: 20201114
  Receipt Date: 20251119
  Transmission Date: 20260117
  Serious: Yes (Hospitalization, Other)
  Sender: TAKEDA
  Company Number: US-SHIRE-US202000851AA

PATIENT
  Age: 35 Year
  Sex: Female
  Weight: 51 kg

DRUGS (4)
  1. VELAGLUCERASE ALFA [Suspect]
     Active Substance: VELAGLUCERASE ALFA
     Indication: Gaucher^s disease
     Dosage: UNK UNK, Q2WEEKS
     Dates: start: 20110920
  2. VELAGLUCERASE ALFA [Suspect]
     Active Substance: VELAGLUCERASE ALFA
     Dosage: 15 DOSAGE FORM, 2/MONTH
     Dates: start: 20111021
  3. VELAGLUCERASE ALFA [Suspect]
     Active Substance: VELAGLUCERASE ALFA
     Dosage: UNK UNK, 2/MONTH
  4. VELAGLUCERASE ALFA [Suspect]
     Active Substance: VELAGLUCERASE ALFA
     Dosage: 6800 INTERNATIONAL UNIT, Q2WEEKS

REACTIONS (19)
  - Chest pain [Unknown]
  - Trismus [Unknown]
  - Blood pressure increased [Unknown]
  - Musculoskeletal stiffness [Unknown]
  - Joint swelling [Unknown]
  - Skin discolouration [Unknown]
  - Pain in extremity [Unknown]
  - General physical health deterioration [Not Recovered/Not Resolved]
  - Malaise [Unknown]
  - Dyspnoea [Unknown]
  - Chest discomfort [Unknown]
  - Dizziness [Unknown]
  - Headache [Unknown]
  - Campylobacter infection [Recovering/Resolving]
  - Illness [Recovering/Resolving]
  - COVID-19 [Recovering/Resolving]
  - Product dose omission issue [Recovering/Resolving]
  - Pyrexia [Unknown]
  - Product preparation error [Unknown]

NARRATIVE: CASE EVENT DATE: 20250610
